FAERS Safety Report 14877005 (Version 1)
Quarter: 2018Q2

REPORT INFORMATION
  Report Type: Spontaneous
  Country: FR (occurrence: FR)
  Receive Date: 20180510
  Receipt Date: 20180510
  Transmission Date: 20180711
  Serious: Yes (Death, Other)
  Sender: FDA-Public Use
  Company Number: FR-PFIZER INC-2018187730

PATIENT
  Age: 85 Year
  Sex: Male

DRUGS (22)
  1. EPITOMAX [Suspect]
     Active Substance: TOPIRAMATE
     Dosage: 100 MG, 1X/DAY
     Route: 048
     Dates: start: 20170428, end: 20170430
  2. IXPRIM [Concomitant]
     Active Substance: ACETAMINOPHEN\TRAMADOL HYDROCHLORIDE
     Dosage: UNK
  3. LEVETIRACETAM. [Suspect]
     Active Substance: LEVETIRACETAM
     Dosage: 1 G, 1X/DAY
     Route: 048
     Dates: start: 20170428, end: 20170430
  4. CARBAMAZEPINE. [Suspect]
     Active Substance: CARBAMAZEPINE
     Dosage: 800 MG, 1X/DAY
     Route: 048
     Dates: start: 20170428, end: 20170430
  5. ASPEGIC [Concomitant]
     Active Substance: ASPIRIN DL-LYSINE
     Dosage: 1 , 1X/DAY
     Route: 065
  6. ZONEGRAN [Suspect]
     Active Substance: ZONISAMIDE
     Dosage: 100 MG, 1X/DAY
     Route: 048
     Dates: start: 20170428, end: 20170430
  7. EUPRESSYL /00631801/ [Concomitant]
     Active Substance: URAPIDIL
     Dosage: 30 MG, 1X/DAY
     Route: 048
  8. CRESTOR [Concomitant]
     Active Substance: ROSUVASTATIN CALCIUM
     Dosage: 1 , 1X/DAY
  9. RISPERIDONE. [Suspect]
     Active Substance: RISPERIDONE
     Dosage: 4 MG, 1X/DAY
     Route: 048
     Dates: start: 20170428, end: 20170430
  10. NOOTROPYL [Concomitant]
     Active Substance: PIRACETAM
     Dosage: 3 , 1X/DAY
  11. CORTANCYL [Concomitant]
     Active Substance: PREDNISONE
     Dosage: 1, 1X/DAY
  12. AMAREL [Concomitant]
     Active Substance: GLIMEPIRIDE
     Dosage: 1, 1X/DAY
  13. DAFALGAN [Concomitant]
     Active Substance: ACETAMINOPHEN
     Dosage: 1 G, UNK
     Route: 048
  14. NATRIXAM [Concomitant]
     Active Substance: AMLODIPINE\INDAPAMIDE
     Dosage: 1, 1X/DAY
  15. ALLOPURINOL. [Concomitant]
     Active Substance: ALLOPURINOL
     Dosage: 1 , 1X/DAY
  16. PERMIXON [Concomitant]
     Active Substance: HERBALS\SAW PALMETTO
     Dosage: UNK
     Route: 065
  17. LOXEN L P [Concomitant]
     Active Substance: NICARDIPINE HYDROCHLORIDE
     Dosage: 50 MG, 1X/DAY
     Route: 048
     Dates: start: 20170428
  18. RIVOTRIL [Suspect]
     Active Substance: CLONAZEPAM
     Dosage: 2 MG, 1X/DAY
     Route: 048
     Dates: start: 20170428, end: 20170430
  19. PERINDOPRIL [Concomitant]
     Active Substance: PERINDOPRIL
     Dosage: 2 MG, 1X/DAY
     Route: 048
     Dates: start: 20170428
  20. MEDIATENSYL /00631801/ [Concomitant]
     Active Substance: URAPIDIL
     Dosage: 1 , 1X/DAY
  21. XATRAL [Concomitant]
     Active Substance: ALFUZOSIN
     Dosage: 1, 1X/DAY
  22. FUROSEMIDE. [Concomitant]
     Active Substance: FUROSEMIDE
     Dosage: 40 MG, 1X/DAY
     Route: 048
     Dates: start: 20170428

REACTIONS (2)
  - Cardio-respiratory arrest [Fatal]
  - Drug administration error [Fatal]

NARRATIVE: CASE EVENT DATE: 20170428
